FAERS Safety Report 18641964 (Version 1)
Quarter: 2020Q4

REPORT INFORMATION
  Report Type: Spontaneous
  Country: US (occurrence: US)
  Receive Date: 20201220
  Receipt Date: 20201220
  Transmission Date: 20210114
  Serious: Yes (Death)
  Sender: FDA-Public Use
  Company Number: None

PATIENT
  Age: 97 Year
  Sex: Female
  Weight: 79.5 kg

DRUGS (1)
  1. CASIRIVIMAB/IMDEVIMAB [Suspect]
     Active Substance: CASIRIVIMAB\IMDEVIMAB
     Indication: COVID-19

REACTIONS (1)
  - Death [None]

NARRATIVE: CASE EVENT DATE: 20201219
